FAERS Safety Report 10615684 (Version 1)
Quarter: 2014Q4

REPORT INFORMATION
  Report Type: Spontaneous
  Country: SE (occurrence: SE)
  Receive Date: 20141201
  Receipt Date: 20141201
  Transmission Date: 20150529
  Serious: Yes (Hospitalization)
  Sender: FDA-Public Use
  Company Number: SE-SA-2014SA159621

PATIENT
  Age: 72 Year
  Sex: Male

DRUGS (1)
  1. CEFOTAXIME [Suspect]
     Active Substance: CEFOTAXIME\CEFOTAXIME SODIUM
     Route: 065

REACTIONS (2)
  - Skin reaction [Unknown]
  - Photosensitivity reaction [Unknown]
